FAERS Safety Report 25258250 (Version 1)
Quarter: 2025Q2

REPORT INFORMATION
  Report Type: Spontaneous
  Country: US (occurrence: US)
  Receive Date: 20250501
  Receipt Date: 20250501
  Transmission Date: 20250717
  Serious: Yes (Death, Hospitalization, Other)
  Sender: UNITED THERAPEUTICS
  Company Number: US-UNITED THERAPEUTICS-UNT-2025-014724

PATIENT
  Age: 32 Year
  Sex: Female

DRUGS (1)
  1. REMODULIN [Suspect]
     Active Substance: TREPROSTINIL
     Indication: Pulmonary arterial hypertension
     Route: 041

REACTIONS (7)
  - Transplant dysfunction [Fatal]
  - Renal failure [Fatal]
  - Pneumonia [Fatal]
  - Pulmonary embolism [Recovered/Resolved]
  - Pulmonary veno-occlusive disease [Unknown]
  - Hypoxia [Unknown]
  - Dyspnoea [Unknown]

NARRATIVE: CASE EVENT DATE: 20220101
